FAERS Safety Report 11003367 (Version 1)
Quarter: 2015Q2

REPORT INFORMATION
  Report Type: Spontaneous
  Country: US (occurrence: None)
  Receive Date: 20150402
  Receipt Date: 20150402
  Transmission Date: 20150821
  Serious: Yes (Other)
  Sender: FDA-Public Use
  Company Number: US-2014-11736

PATIENT

DRUGS (5)
  1. FLUDARABINE [Suspect]
     Active Substance: FLUDARABINE PHOSPHATE
     Indication: HAEMATOLOGICAL MALIGNANCY
  2. TACROLIMUS. [Concomitant]
     Active Substance: TACROLIMUS
  3. CLOFARABINE (CLOFARABINE) (CLOFARABINE) [Suspect]
     Active Substance: CLOFARABINE
     Indication: HAEMATOLOGICAL MALIGNANCY
  4. ANTITHYMOCYTE IMMUNOGLOBULIN (RABBIT) (ANTITHYMOCYTE IMMUNOGLOBULIN (RABBIT)) [Concomitant]
  5. BUSULFEX [Suspect]
     Active Substance: BUSULFAN
     Indication: HAEMATOLOGICAL MALIGNANCY

REACTIONS (3)
  - Drug administration error [None]
  - Mucosal inflammation [None]
  - Off label use [None]
